FAERS Safety Report 5592993-4 (Version None)
Quarter: 2008Q1

REPORT INFORMATION
  Report Type: 
  Country: None (occurrence: None)
  Receive Date: 20080114
  Receipt Date: 20080109
  Transmission Date: 20080703
  Serious: Yes (Death, Hospitalization)
  Sender: FDA-Public Use
  Company Number: 2007SP022757

PATIENT
  Age: 69 Year
  Sex: Male
  Weight: 66 kg

DRUGS (12)
  1. TEMODAR [Suspect]
     Indication: NON-SMALL CELL LUNG CANCER
     Dosage: 75 MG/M2; QD; PO
     Route: 048
     Dates: start: 20070924, end: 20071014
  2. DEXAMETHASONE TAB [Concomitant]
  3. DIGOXIN [Concomitant]
  4. COLACE [Concomitant]
  5. PEPCID [Concomitant]
  6. OMEGA 3 FISH OIL [Concomitant]
  7. FOLIC ACID [Concomitant]
  8. INSULIN [Concomitant]
  9. REMERON [Concomitant]
  10. PHENYTOIN [Concomitant]
  11. PERCOCET [Concomitant]
  12. LORAZEPAM [Concomitant]

REACTIONS (3)
  - CEREBROVASCULAR ACCIDENT [None]
  - DISEASE PROGRESSION [None]
  - FALL [None]
